FAERS Safety Report 13314525 (Version 2)
Quarter: 2017Q1

REPORT INFORMATION
  Report Type: Report from Study
  Country: DE (occurrence: DE)
  Receive Date: 20170309
  Receipt Date: 20170321
  Transmission Date: 20170428
  Serious: Yes (Hospitalization)
  Sender: FDA-Public Use
  Company Number: DE-TEVA-747131ACC

PATIENT
  Age: 66 Year
  Sex: Male
  Weight: 82 kg

DRUGS (10)
  1. ASPIRIN. [Concomitant]
     Active Substance: ASPIRIN
     Indication: MYOCARDIAL INFARCTION
     Dosage: 100 MILLIGRAM DAILY;
     Route: 048
     Dates: start: 2005
  2. ALLOPURINOL. [Concomitant]
     Active Substance: ALLOPURINOL
     Indication: HYPERLIPIDAEMIA
     Dosage: 300 MILLIGRAM DAILY;
     Route: 048
     Dates: start: 2005
  3. WARFARIN [Suspect]
     Active Substance: WARFARIN
     Indication: ATRIAL FIBRILLATION
  4. TORASEMID [Concomitant]
     Active Substance: TORSEMIDE
     Indication: EJECTION FRACTION DECREASED
     Dosage: 30 MILLIGRAM DAILY;
     Route: 048
  5. CERTOPARIN [Concomitant]
     Active Substance: CERTOPARIN SODIUM
     Indication: THROMBOSIS PROPHYLAXIS
     Dosage: 16000 IU (INTERNATIONAL UNIT) DAILY;
     Route: 058
     Dates: start: 20160605
  6. SIMVASTATIN. [Concomitant]
     Active Substance: SIMVASTATIN
     Indication: HYPERLIPIDAEMIA
     Dosage: 20 MILLIGRAM DAILY;
     Route: 048
     Dates: start: 2005
  7. WARFARIN [Suspect]
     Active Substance: WARFARIN
     Indication: PERCUTANEOUS CORONARY INTERVENTION
     Dosage: 1.2  DAILY; APPROXIMATELY 1.2
     Route: 048
     Dates: start: 20160503, end: 20170219
  8. RAMIPRIL. [Concomitant]
     Active Substance: RAMIPRIL
     Indication: HYPERTENSION
     Dosage: 1.25 MILLIGRAM DAILY;
     Route: 048
     Dates: start: 2005
  9. BISOPROLOL [Concomitant]
     Active Substance: BISOPROLOL
     Indication: HYPERTENSION
     Dosage: 3.75 MILLIGRAM DAILY;
     Route: 048
     Dates: start: 2005
  10. BISOPROLOL [Concomitant]
     Active Substance: BISOPROLOL
     Dosage: 75 MILLIGRAM DAILY;
     Route: 048
     Dates: start: 2005

REACTIONS (2)
  - Coronary artery disease [Recovered/Resolved]
  - Overdose [Recovered/Resolved]

NARRATIVE: CASE EVENT DATE: 20160908
